FAERS Safety Report 5709124-X (Version None)
Quarter: 2008Q2

REPORT INFORMATION
  Report Type: 
  Country: None (occurrence: None)
  Receive Date: 20080416
  Receipt Date: 20080416
  Transmission Date: 20081010
  Serious: Yes (Hospitalization)
  Sender: FDA-Public Use
  Company Number: None

PATIENT
  Sex: Female
  Weight: 10.1 kg

DRUGS (1)
  1. DESMOPRESSIN ACETATE [Suspect]
     Indication: DIABETES INSIPIDUS
     Dosage: 4 MCG BID NASAL
     Route: 045
     Dates: start: 20080114, end: 20080218

REACTIONS (9)
  - CONVULSION [None]
  - DYSPNOEA [None]
  - EXCESSIVE EYE BLINKING [None]
  - GRAND MAL CONVULSION [None]
  - HYPONATRAEMIA [None]
  - POLYDIPSIA [None]
  - POLYURIA [None]
  - POSTICTAL STATE [None]
  - TREMOR [None]
